FAERS Safety Report 15439959 (Version 2)
Quarter: 2018Q4

REPORT INFORMATION
  Report Type: Spontaneous
  Country: GB (occurrence: GB)
  Receive Date: 20180928
  Receipt Date: 20181015
  Transmission Date: 20190204
  Serious: Yes (Other)
  Sender: FDA-Public Use
  Company Number: GB-MYLANLABS-2018M1069317

PATIENT
  Age: 4 Month
  Sex: Female

DRUGS (20)
  1. THIOTEPA. [Suspect]
     Active Substance: THIOTEPA
     Indication: BONE MARROW CONDITIONING REGIMEN
     Dosage: SECOND TRANSPLANT: AGE 18 MONTHS
     Route: 065
     Dates: start: 2013
  2. HYDROCORTISONE. [Concomitant]
     Active Substance: HYDROCORTISONE
     Indication: IMMUNOSUPPRESSANT DRUG THERAPY
     Route: 065
     Dates: start: 201509, end: 201510
  3. METHYLPREDNISOLONE. [Suspect]
     Active Substance: METHYLPREDNISOLONE
     Dosage: 2 MG/KG, DOSE AT THE TIME OF FIRST TRANSPLANT (AGE OF 18 MONTHS)
     Route: 065
     Dates: end: 2015
  4. INFLIXIMAB [Suspect]
     Active Substance: INFLIXIMAB
     Dosage: DURING 2ND TRANSPLANTATION
     Route: 065
  5. PREDNISOLONE. [Suspect]
     Active Substance: PREDNISOLONE
     Indication: IMMUNOSUPPRESSANT DRUG THERAPY
     Route: 065
     Dates: end: 201509
  6. CICLOSPORIN [Suspect]
     Active Substance: CYCLOSPORINE
     Indication: PROPHYLAXIS AGAINST GRAFT VERSUS HOST DISEASE
     Route: 065
  7. MYCOPHENOLATE MOFETIL. [Suspect]
     Active Substance: MYCOPHENOLATE MOFETIL
     Indication: PROPHYLAXIS AGAINST GRAFT VERSUS HOST DISEASE
     Dosage: DURING 2ND TRANSPLANTATION
     Dates: start: 2013
  8. ALEMTUZUMAB [Suspect]
     Active Substance: ALEMTUZUMAB
     Dosage: SECOND TRANSPLANT: AGE 18 MONTHS
     Route: 065
     Dates: start: 2013
  9. TREOSULFAN [Suspect]
     Active Substance: TREOSULFAN
     Indication: BONE MARROW CONDITIONING REGIMEN
     Dosage: 36G/M2: FIRST TRANSPLANT: AGE 7 MONTHS
     Route: 065
  10. TREOSULFAN [Suspect]
     Active Substance: TREOSULFAN
     Dosage: 36G/M2: SECOND TRANSPLANT: AGE 18 MONTHS
     Route: 065
     Dates: start: 2013
  11. FLUDARABINE MYLAN [Suspect]
     Active Substance: FLUDARABINE PHOSPHATE
     Dosage: 150 MG/M2, SECOND TRANSPLANT: AGE 18 MONTHS
     Route: 065
     Dates: start: 2013
  12. TACROLIMUS. [Suspect]
     Active Substance: TACROLIMUS
     Indication: PROPHYLAXIS AGAINST GRAFT VERSUS HOST DISEASE
     Route: 065
     Dates: start: 2013
  13. CIDOFOVIR. [Concomitant]
     Active Substance: CIDOFOVIR
     Indication: ADENOVIRUS INFECTION
     Route: 065
  14. FLUDARABINE MYLAN [Suspect]
     Active Substance: FLUDARABINE PHOSPHATE
     Indication: BONE MARROW CONDITIONING REGIMEN
     Dosage: 150 MG/M2,/FIRST TRANSPLANT: AGE 7 MONTHS
     Route: 065
  15. MYCOPHENOLATE MOFETIL. [Suspect]
     Active Substance: MYCOPHENOLATE MOFETIL
     Indication: ACUTE GRAFT VERSUS HOST DISEASE IN SKIN
     Dosage: DURING 1ST TRANSPLANTATION
     Route: 065
  16. INFLIXIMAB [Suspect]
     Active Substance: INFLIXIMAB
     Indication: ACUTE GRAFT VERSUS HOST DISEASE IN SKIN
     Dosage: DURING 1ST TRANSPLANTATION
     Route: 065
  17. ANTITHYMOCYTE IMMUNOGLOBULIN [Suspect]
     Active Substance: THYMOCYTE IMMUNE GLOBULIN NOS
     Indication: ACUTE GRAFT VERSUS HOST DISEASE IN SKIN
     Route: 065
  18. ALEMTUZUMAB [Suspect]
     Active Substance: ALEMTUZUMAB
     Indication: BONE MARROW CONDITIONING REGIMEN
     Dosage: LOW DOSE, FIRST TRANSPLANT: AGE 7 MONTHS
     Route: 065
  19. BCG [Suspect]
     Active Substance: BCG VACCINE
     Indication: IMMUNISATION
     Route: 065
  20. METHYLPREDNISOLONE. [Suspect]
     Active Substance: METHYLPREDNISOLONE
     Indication: ACUTE GRAFT VERSUS HOST DISEASE IN SKIN
     Dosage: 2 MG/KG, DOSE AT THE TIME OF FIRST TRANSPLANT (AGE OF 7 MONTHS)
     Route: 065

REACTIONS (4)
  - Enteritis infectious [Recovered/Resolved]
  - Adenovirus infection [Recovered/Resolved]
  - Hypertension [Unknown]
  - Thrombotic microangiopathy [Unknown]
